FAERS Safety Report 11857785 (Version 1)
Quarter: 2015Q4

REPORT INFORMATION
  Report Type: Spontaneous
  Country: US (occurrence: None)
  Receive Date: 20151221
  Receipt Date: 20151221
  Transmission Date: 20160305
  Serious: No
  Sender: FDA-Public Use
  Company Number: None

PATIENT
  Age: 45 Year
  Sex: Female
  Weight: 90.72 kg

DRUGS (9)
  1. MIGRAVENT [Concomitant]
     Active Substance: DIETARY SUPPLEMENT
  2. MAGNESIUM [Concomitant]
     Active Substance: MAGNESIUM
  3. VITAMIN C [Concomitant]
     Active Substance: ASCORBIC ACID
  4. VITAMIN A [Concomitant]
     Active Substance: VITAMIN A
  5. MELOXICAM 15 MG CIPLA USA.INC [Suspect]
     Active Substance: MELOXICAM
     Indication: INFLAMMATION
     Route: 048
  6. OCELLA [Concomitant]
     Active Substance: DROSPIRENONE\ETHINYL ESTRADIOL
  7. VITAMIN B [Concomitant]
     Active Substance: VITAMIN B
  8. MIGARNOL [Concomitant]
  9. VITAMIN D [Concomitant]
     Active Substance: CHOLECALCIFEROL

REACTIONS (2)
  - Breakthrough pain [None]
  - Product quality issue [None]
